FAERS Safety Report 10026424 (Version 2)
Quarter: 2014Q1

REPORT INFORMATION
  Report Type: Spontaneous
  Country: BR (occurrence: BR)
  Receive Date: 20140321
  Receipt Date: 20140321
  Transmission Date: 20141002
  Serious: Yes (Other)
  Sender: FDA-Public Use
  Company Number: BR-AMGEN-BRASP2012050114

PATIENT
  Age: 48 Year
  Sex: Female
  Weight: 58 kg

DRUGS (8)
  1. ENBREL [Suspect]
     Indication: RHEUMATOID ARTHRITIS
     Dosage: 50 MG, ONCE WEEKLY
     Route: 058
     Dates: start: 201001
  2. ENBREL [Suspect]
     Dosage: 50 MG, 1X/WEEK
     Route: 058
  3. PARACETAMOL [Concomitant]
     Indication: PAIN
     Dosage: UNK UNK, AS NECESSARY
  4. NAPROXEN [Concomitant]
     Dosage: UNK
  5. OMEPRAZOLE [Concomitant]
     Dosage: UNK
  6. HIGROTON [Concomitant]
     Indication: BLOOD PRESSURE ABNORMAL
     Dosage: UNK
  7. CALCIUM [Concomitant]
     Dosage: UNK
  8. TYLEX                              /00547501/ [Concomitant]
     Indication: PAIN
     Dosage: UNK UNK, AS NECESSARY

REACTIONS (4)
  - Arthropathy [Unknown]
  - Alopecia [Not Recovered/Not Resolved]
  - Arthralgia [Not Recovered/Not Resolved]
  - Injection site pain [Unknown]
